FAERS Safety Report 8023628-9 (Version None)
Quarter: 2012Q1

REPORT INFORMATION
  Report Type: 
  Country: None (occurrence: None)
  Receive Date: 20120104
  Receipt Date: 20120104
  Transmission Date: 20120608
  Serious: Yes (Life-Threatening, Other)
  Sender: FDA-Public Use
  Company Number: None

PATIENT
  Age: 70 Year
  Sex: Male
  Weight: 76.6579 kg

DRUGS (2)
  1. LISINOPRIL [Suspect]
     Indication: ATRIAL FIBRILLATION
     Dosage: 5 MG 1 DAILY ORAL
     Route: 048
     Dates: start: 20110101, end: 20111020
  2. LISINOPRIL [Suspect]
     Indication: HYPERTENSION
     Dosage: 5 MG 1 DAILY ORAL
     Route: 048
     Dates: start: 20110101, end: 20111020

REACTIONS (1)
  - DYSPNOEA [None]
